FAERS Safety Report 24913130 (Version 1)
Quarter: 2025Q1

REPORT INFORMATION
  Report Type: Report from Study
  Country: US (occurrence: US)
  Receive Date: 20250201
  Receipt Date: 20250201
  Transmission Date: 20250409
  Serious: Yes (Hospitalization)
  Sender: ROCHE
  Company Number: US-ROCHE-10000190032

PATIENT
  Age: 72 Year
  Sex: Male
  Weight: 84.36 kg

DRUGS (24)
  1. ACTEMRA [Suspect]
     Active Substance: TOCILIZUMAB
     Indication: Gout
     Dosage: 162MG PER 0.9ML AND TAKES EVERY FRIDAY
     Route: 058
  2. ZYLOPRIM [Concomitant]
     Active Substance: ALLOPURINOL
     Indication: Gout
     Route: 048
  3. FUROSEMIDE [Concomitant]
     Active Substance: FUROSEMIDE
     Route: 048
  4. VALTREX [Concomitant]
     Active Substance: VALACYCLOVIR HYDROCHLORIDE
     Route: 048
  5. NORVASC [Concomitant]
     Active Substance: AMLODIPINE BESYLATE
     Route: 048
  6. TAMSULOSIN [Concomitant]
     Active Substance: TAMSULOSIN
     Indication: Prostatomegaly
     Route: 048
  7. INDERAL [Concomitant]
     Active Substance: PROPRANOLOL HYDROCHLORIDE
     Indication: Hypertension
     Route: 048
  8. TRULICITY [Concomitant]
     Active Substance: DULAGLUTIDE
     Indication: Diabetes mellitus
     Dosage: DOSE IS 3.0MG/0.5ML
     Route: 058
     Dates: start: 202206
  9. SEVELAMER CARBONATE [Concomitant]
     Active Substance: SEVELAMER CARBONATE
     Dosage: TAKES WITH BREAKFAST, LUNCH, DINNER
     Route: 048
     Dates: start: 202410
  10. BASAGLAR [Concomitant]
     Active Substance: INSULIN GLARGINE
     Indication: Diabetes mellitus
     Dosage: DOSE IS ^100 UNIT^ IN THE MORNING
     Route: 058
     Dates: start: 202203
  11. HUMALOG [Concomitant]
     Active Substance: INSULIN LISPRO
     Indication: Diabetes mellitus
     Route: 058
  12. VITAMIN C [Concomitant]
     Active Substance: ASCORBIC ACID
     Route: 048
  13. VITAMIN D3 [Concomitant]
     Active Substance: CHOLECALCIFEROL
     Route: 048
  14. DULAGLUTIDE [Concomitant]
     Active Substance: DULAGLUTIDE
     Route: 058
  15. ENTERIC ASPIRIN [Concomitant]
     Active Substance: ASPIRIN
     Route: 048
  16. FERATAB [Concomitant]
     Route: 048
  17. FOLVITE [Concomitant]
     Active Substance: FOLIC ACID
  18. GLUCAGON [Concomitant]
     Active Substance: GLUCAGON
     Route: 030
  19. NOVOLOG [Concomitant]
     Active Substance: INSULIN ASPART
     Route: 058
  20. CLARITIN [Concomitant]
     Active Substance: LORATADINE
     Route: 048
  21. MAGNESIUM CHLORIDE [Concomitant]
     Active Substance: MAGNESIUM CHLORIDE
     Route: 048
  22. DELTASONE [Concomitant]
     Active Substance: PREDNISONE
     Route: 048
  23. CRESTOR [Concomitant]
     Active Substance: ROSUVASTATIN CALCIUM
     Route: 048
  24. SODIUM BICARBONATE [Concomitant]
     Active Substance: SODIUM BICARBONATE
     Route: 048

REACTIONS (2)
  - Urinary tract infection [Recovered/Resolved]
  - Off label use [Unknown]

NARRATIVE: CASE EVENT DATE: 20240101
